FAERS Safety Report 9896032 (Version 1)
Quarter: 2014Q1

REPORT INFORMATION
  Report Type: Spontaneous
  Country: US (occurrence: US)
  Receive Date: 20140213
  Receipt Date: 20140213
  Transmission Date: 20141002
  Serious: No
  Sender: FDA-Public Use
  Company Number: US-BRISTOL-MYERS SQUIBB COMPANY-18802777

PATIENT
  Age: 60 Year
  Sex: Female
  Weight: 77.1 kg

DRUGS (5)
  1. ABATACEPT SUBQ INJECTION 125MG/ML [Suspect]
     Indication: RHEUMATOID ARTHRITIS
     Dosage: 1DF=125MG/ML?LAST DOSE 4WKS AGO
     Route: 058
     Dates: end: 2013
  2. PLAQUENIL [Concomitant]
     Dosage: TABS
  3. LIPITOR [Concomitant]
     Dosage: TABS
  4. ADVIL [Concomitant]
     Dosage: CAPS
  5. MULTIVITAMIN [Concomitant]
     Dosage: CAPS

REACTIONS (1)
  - Drug ineffective [Unknown]
